FAERS Safety Report 19926711 (Version 1)
Quarter: 2021Q4

REPORT INFORMATION
  Report Type: Spontaneous
  Country: US (occurrence: US)
  Receive Date: 20211006
  Receipt Date: 20211006
  Transmission Date: 20220303
  Serious: Yes (Hospitalization, Other)
  Sender: FDA-Public Use
  Company Number: US-AMGEN-USASP2021151454

PATIENT
  Age: 55 Year
  Sex: Female

DRUGS (5)
  1. FILGRASTIM [Suspect]
     Active Substance: FILGRASTIM
     Indication: Leukopenia
     Dosage: UNK
     Route: 065
  2. FILGRASTIM [Suspect]
     Active Substance: FILGRASTIM
     Indication: Off label use
     Dosage: 480 MICROGRAM
     Route: 065
  3. NOREPINEPHRINE [Concomitant]
     Active Substance: NOREPINEPHRINE
     Dosage: UNK
  4. VALACYCLOVIR HYDROCHLORIDE [Concomitant]
     Active Substance: VALACYCLOVIR HYDROCHLORIDE
     Indication: Genital herpes
     Dosage: UNK
     Route: 048
  5. PREDNISONE [Concomitant]
     Active Substance: PREDNISONE
     Indication: Leukopenia
     Dosage: UNK, 30 MG BID, 10 MG, 20 MG
     Route: 048

REACTIONS (6)
  - Neutropenia [Unknown]
  - Rheumatoid arthritis [Unknown]
  - White blood cell count decreased [Unknown]
  - Pleurisy [Unknown]
  - Off label use [Unknown]
  - Drug ineffective for unapproved indication [Unknown]
